APPROVED DRUG PRODUCT: METHYLPHENIDATE HYDROCHLORIDE
Active Ingredient: METHYLPHENIDATE HYDROCHLORIDE
Strength: 27MG
Dosage Form/Route: TABLET, EXTENDED RELEASE;ORAL
Application: A213473 | Product #002 | TE Code: AB
Applicant: GRANULES PHARMACEUTICALS INC
Approved: Jul 29, 2020 | RLD: No | RS: No | Type: RX